FAERS Safety Report 5444225-5 (Version None)
Quarter: 2007Q3

REPORT INFORMATION
  Report Type: 
  Country: None (occurrence: None)
  Receive Date: 20070904
  Receipt Date: 20070904
  Transmission Date: 20080115
  Serious: Yes (Hospitalization)
  Sender: FDA-Public Use
  Company Number: None

PATIENT
  Sex: Female
  Weight: 154.223 kg

DRUGS (3)
  1. GEMCITABINE HCL [Suspect]
     Indication: NON-SMALL CELL LUNG CANCER
     Dosage: 1000 DAY1,8 Q 21 DAYS IV
     Route: 042
     Dates: start: 20070418, end: 20070706
  2. CARBOPLATIN [Suspect]
     Dosage: 5 AUC DAY 1 Q 21 DAYS IV
     Route: 042
     Dates: start: 20070418, end: 20070706
  3. VELCADE [Suspect]
     Indication: NON-SMALL CELL LUNG CANCER
     Dosage: 1 MG DAY 1,8Q 21 DAYS
     Dates: start: 20070418, end: 20070706

REACTIONS (3)
  - CATHETER THROMBOSIS [None]
  - JUGULAR VEIN THROMBOSIS [None]
  - LOCAL SWELLING [None]
